FAERS Safety Report 9328430 (Version 1)
Quarter: 2013Q2

REPORT INFORMATION
  Report Type: Spontaneous
  Country: US (occurrence: US)
  Receive Date: 20130604
  Receipt Date: 20130604
  Transmission Date: 20140414
  Serious: No
  Sender: FDA-Public Use
  Company Number: US-SANOFI-AVENTIS-2012SA068722

PATIENT
  Sex: Female

DRUGS (2)
  1. LANTUS SOLOSTAR [Suspect]
     Dosage: PRODUCT START DATE MENTIONED AS SEVERAL YEARS AGO DOSE:32 UNIT(S)
     Route: 058
  2. SOLOSTAR [Suspect]
     Dosage: PRODUCT START DATE MENTIONED AS SEVERAL YEARS AGO

REACTIONS (1)
  - Confusional state [Not Recovered/Not Resolved]
